FAERS Safety Report 8338075-X (Version None)
Quarter: 2012Q2

REPORT INFORMATION
  Report Type: 
  Country: None (occurrence: None)
  Receive Date: 20120504
  Receipt Date: 20120424
  Transmission Date: 20120825
  Serious: Yes (Hospitalization)
  Sender: FDA-Public Use
  Company Number: US-ASTRAZENECA-2009UW09611

PATIENT
  Age: 50 Year
  Sex: Male

DRUGS (9)
  1. NEXIUM [Suspect]
     Route: 048
  2. PRILOSEC [Suspect]
     Route: 048
  3. SEROQUEL XR [Suspect]
     Route: 048
  4. SEROQUEL XR [Suspect]
     Indication: DEPRESSION
     Route: 048
  5. REMERON [Concomitant]
  6. SEROQUEL XR [Suspect]
     Route: 048
  7. SEROQUEL XR [Suspect]
     Indication: BIPOLAR DISORDER
     Route: 048
  8. SEROQUEL XR [Suspect]
     Route: 048
  9. SEROQUEL XR [Suspect]
     Route: 048

REACTIONS (9)
  - MENTAL DISORDER [None]
  - HEADACHE [None]
  - PERFORMANCE STATUS DECREASED [None]
  - DRUG INEFFECTIVE [None]
  - CATARACT [None]
  - DRUG TOLERANCE DECREASED [None]
  - GASTRIC DISORDER [None]
  - LETHARGY [None]
  - FEELING ABNORMAL [None]
